FAERS Safety Report 5783001-0 (Version None)
Quarter: 2008Q2

REPORT INFORMATION
  Report Type: 
  Country: None (occurrence: None)
  Receive Date: 20080619
  Receipt Date: 20080612
  Transmission Date: 20081010
  Serious: Yes (Death, Other)
  Sender: FDA-Public Use
  Company Number: 2008-01019

PATIENT
  Age: 63 Year
  Sex: Male
  Weight: 57 kg

DRUGS (15)
  1. VELCADE [Suspect]
     Indication: MULTIPLE MYELOMA
     Dosage: 2.00 MG, INTRAVENOUS
     Route: 042
     Dates: start: 20071114, end: 20071124
  2. DEXAMETHASONE [Concomitant]
  3. VANCOMYCIN [Concomitant]
  4. ADONA (CARBAZOCHROME SODIUM SULFONATE) [Concomitant]
  5. MUCOSOLVAN (AMBROXOL HYDROCHLORIDE) [Concomitant]
  6. LANSOPRAZOLE [Concomitant]
  7. ITRACONAZOLE [Concomitant]
  8. MAGNESIUM OXIDE (MAGNESIUM OXIDE) [Concomitant]
  9. OXYCONTIN [Concomitant]
  10. DEPAKENE [Concomitant]
  11. BROCIN-CODEINE (CODEINE PHOSPHATE, WILD CHERRY BARK) [Concomitant]
  12. SOLANAX (ALPRAZOLAM) [Concomitant]
  13. DICLOFENAC SODIUM [Concomitant]
  14. PURSENNID SENNA (SENNA LEAF) [Concomitant]
  15. PLATELETS [Concomitant]

REACTIONS (6)
  - ASPARTATE AMINOTRANSFERASE INCREASED [None]
  - BLOOD LACTATE DEHYDROGENASE INCREASED [None]
  - BLOOD URIC ACID INCREASED [None]
  - DISEASE PROGRESSION [None]
  - PLATELET COUNT DECREASED [None]
  - TUMOUR LYSIS SYNDROME [None]
